FAERS Safety Report 5275603-5 (Version None)
Quarter: 2007Q1

REPORT INFORMATION
  Report Type: 
  Country: None (occurrence: None)
  Receive Date: 20070326
  Receipt Date: 20070313
  Transmission Date: 20070707
  Serious: Yes (Hospitalization, Other)
  Sender: FDA-Public Use
  Company Number: PHBS2007NO04582

PATIENT
  Age: 91 Year
  Sex: Female

DRUGS (7)
  1. VOLTAREN [Suspect]
     Route: 048
     Dates: end: 20070201
  2. PREDNISOLONE [Suspect]
     Indication: MYALGIA
     Dosage: UNK, UNK
     Route: 048
     Dates: start: 20061201, end: 20070201
  3. TRILAFON [Suspect]
     Dosage: 8 MG DAILY
     Route: 048
     Dates: end: 20070225
  4. ALBYL-E [Suspect]
     Dosage: 160 MG DAILY
     Route: 048
  5. PLENDIL [Concomitant]
     Dates: end: 20070201
  6. ATACAND HCT [Concomitant]
     Dates: end: 20070201
  7. SELO-ZOK [Concomitant]
     Dosage: 200 MG DAILY
     Route: 048

REACTIONS (23)
  - ALANINE AMINOTRANSFERASE DECREASED [None]
  - BACTERIAL DNA TEST POSITIVE [None]
  - BLOOD CALCIUM INCREASED [None]
  - BLOOD CREATININE INCREASED [None]
  - BLOOD IRON DECREASED [None]
  - BLOOD POTASSIUM DECREASED [None]
  - BLOOD SODIUM DECREASED [None]
  - C-REACTIVE PROTEIN INCREASED [None]
  - CONSTIPATION [None]
  - DECREASED APPETITE [None]
  - DRUG INTERACTION [None]
  - EATING DISORDER [None]
  - ENDOSCOPY [None]
  - GASTROINTESTINAL ULCER [None]
  - HAEMATOCHEZIA [None]
  - HYPOKINESIA [None]
  - MENTAL DISORDER [None]
  - METHYLMALONIC ACIDURIA [None]
  - MUSCLE RIGIDITY [None]
  - PLATELET COUNT INCREASED [None]
  - TARDIVE DYSKINESIA [None]
  - THYROXINE INCREASED [None]
  - WHITE BLOOD CELL COUNT INCREASED [None]
